FAERS Safety Report 6573523 (Version 4)
Quarter: 2015Q4

REPORT INFORMATION
  Report Type: Spontaneous
  Country: AU (occurrence: AU)
  Receive Date: 20080307
  Receipt Date: 20151015
  Transmission Date: 20160305
  Serious: Yes (Other)
  Sender: FDA-Public Use
  Company Number: AU-PFIZER INC-2008018662

PATIENT
  Age: 45 Year
  Sex: Female
  Weight: 85 kg

DRUGS (9)
  1. ARTANE [Concomitant]
     Active Substance: TRIHEXYPHENIDYL HYDROCHLORIDE
     Dosage: 5 MG, 2X/DAY
     Route: 048
  2. ZYPREXA [Concomitant]
     Active Substance: OLANZAPINE
     Dosage: UNK
  3. TOPAMAX [Concomitant]
     Active Substance: TOPIRAMATE
     Indication: SEIZURE
     Dosage: UNK
  4. ENDEP [Concomitant]
     Active Substance: AMITRIPTYLINE HYDROCHLORIDE
     Dosage: 100 MG, 1X/DAY
     Route: 048
  5. ASASANTIN SR [Concomitant]
     Active Substance: ASPIRIN\DIPYRIDAMOLE
     Dosage: 200/25MG ONE TWICE A DAY
     Route: 048
  6. DIABEX [Concomitant]
     Active Substance: METFORMIN HYDROCHLORIDE
     Dosage: 1000 MG, 1X/DAY
     Route: 048
  7. RIVOTRIL [Concomitant]
     Active Substance: CLONAZEPAM
     Dosage: UNK
  8. KEPPRA [Concomitant]
     Active Substance: LEVETIRACETAM
     Indication: SEIZURE
     Dosage: UNK
  9. CHAMPIX [Suspect]
     Active Substance: VARENICLINE TARTRATE
     Indication: SMOKING CESSATION THERAPY
     Dosage: 1 MG, 2X/DAY
     Route: 048
     Dates: start: 20080114, end: 20080217

REACTIONS (5)
  - Paranoia [Unknown]
  - Delusion [Unknown]
  - Generalised tonic-clonic seizure [Unknown]
  - Seizure [Unknown]
  - Hallucination [Unknown]

NARRATIVE: CASE EVENT DATE: 2008
